FAERS Safety Report 17262439 (Version 2)
Quarter: 2020Q1

REPORT INFORMATION
  Report Type: Spontaneous
  Country: US (occurrence: US)
  Receive Date: 20200113
  Receipt Date: 20200116
  Transmission Date: 20200409
  Serious: No
  Sender: FDA-Public Use
  Company Number: US-PFIZER INC-2019246725

PATIENT
  Age: 74 Year
  Sex: Male

DRUGS (3)
  1. LYRICA [Suspect]
     Active Substance: PREGABALIN
     Dosage: 225 MG, AS NEEDED (1 CAPSULE EVERY 8 HOURS AS NEEDED)
     Route: 048
  2. LYRICA [Suspect]
     Active Substance: PREGABALIN
     Dosage: 225 MG, THREE TIMES A DAY
     Route: 048
  3. LYRICA [Suspect]
     Active Substance: PREGABALIN
     Indication: DIABETIC NEUROPATHY
     Dosage: 225 MG, AS NEEDED (1 CAPSULE EVERY 8 HOURS AS NEEDED)
     Route: 048

REACTIONS (4)
  - Drug ineffective [Unknown]
  - Mobility decreased [Unknown]
  - Atrophy [Unknown]
  - Prescribed overdose [Unknown]
